FAERS Safety Report 5010763-2 (Version None)
Quarter: 2006Q2

REPORT INFORMATION
  Report Type: 
  Country: None (occurrence: None)
  Receive Date: 20060525
  Receipt Date: 20060515
  Transmission Date: 20061013
  Serious: Yes (Hospitalization)
  Sender: FDA-Public Use
  Company Number: AT-ROCHE-447827

PATIENT
  Age: 40 Year
  Sex: Male

DRUGS (8)
  1. MYCOPHENOLATE MOFETIL [Suspect]
     Route: 048
     Dates: start: 20040730
  2. FK506 [Suspect]
     Route: 048
     Dates: start: 20040730
  3. PREDNISONE TAB [Concomitant]
     Dosage: PREDNISONE ACETATE
  4. SULFAMETHOXAZOLE + TRIMETHOPRIM [Concomitant]
  5. ERTAPENEM [Concomitant]
     Dosage: ERTAPENEM SODIUM.
  6. LINEZOLID [Concomitant]
  7. LEVOFLOXACIN [Concomitant]
  8. CEFPIROME SULFATE [Concomitant]

REACTIONS (4)
  - CYTOMEGALOVIRUS OESOPHAGITIS [None]
  - PANCREATIC FISTULA [None]
  - PANCREATIC NECROSIS [None]
  - PANCREATITIS [None]
